FAERS Safety Report 6835836-0 (Version None)
Quarter: 2010Q3

REPORT INFORMATION
  Report Type: 
  Country: None (occurrence: None)
  Receive Date: 20100713
  Receipt Date: 20100702
  Transmission Date: 20110219
  Serious: No
  Sender: FDA-Public Use
  Company Number: US-ELI_LILLY_AND_COMPANY-US201004006350

PATIENT
  Sex: Female
  Weight: 113.38 kg

DRUGS (12)
  1. BYETTA [Suspect]
     Indication: TYPE 2 DIABETES MELLITUS
     Dosage: UNK, 2/D
     Dates: start: 20091008
  2. SYNTHROID [Concomitant]
     Indication: THYROID DISORDER
     Dosage: 150 UG, DAILY (1/D)
     Route: 048
  3. SYNTHROID [Concomitant]
     Dosage: 125 UG, DAILY (1/D)
  4. POTASSIUM CHLORIDE [Concomitant]
     Dosage: 20 MEQ, DAILY (1/D)
     Route: 048
  5. MAGNESIUM [Concomitant]
     Dosage: 500 MG, DAILY (1/D)
  6. SINGULAIR [Concomitant]
     Indication: HYPERSENSITIVITY
     Dosage: UNK, DAILY (1/D)
     Route: 048
  7. PROTONIX [Concomitant]
     Dosage: 40 MG, AS NEEDED
     Route: 048
  8. LASIX [Concomitant]
     Dosage: 20 MG, UNK
  9. ALLEGRA [Concomitant]
     Indication: HYPERSENSITIVITY
     Dosage: 180 MG, UNK
  10. PEPCID [Concomitant]
     Indication: HYPERSENSITIVITY
  11. CATAPRES-TTS-1 [Concomitant]
     Dosage: 0.3 MG, UNK
  12. LEVOXYL [Concomitant]
     Dosage: 0.175 MG, UNK

REACTIONS (2)
  - VOMITING PROJECTILE [None]
  - WEIGHT INCREASED [None]
